FAERS Safety Report 6370143-4 (Version None)
Quarter: 2009Q3

REPORT INFORMATION
  Report Type: 
  Country: None (occurrence: None)
  Receive Date: 20090923
  Receipt Date: 20070828
  Transmission Date: 20100115
  Serious: No
  Sender: FDA-Public Use
  Company Number: US-ASTRAZENECA-2006UW22171

PATIENT
  Age: 597 Month
  Sex: Male

DRUGS (13)
  1. SEROQUEL [Suspect]
     Indication: DEPRESSION
     Route: 048
     Dates: start: 19970501, end: 20020901
  2. SEROQUEL [Suspect]
     Indication: BIPOLAR DISORDER
     Route: 048
     Dates: start: 19970501, end: 20020901
  3. SEROQUEL [Suspect]
     Indication: ANXIETY
     Route: 048
     Dates: start: 19970501, end: 20020901
  4. SEROQUEL [Suspect]
     Dosage: 400MG TO 600MG
     Route: 048
     Dates: start: 19971001, end: 20010801
  5. SEROQUEL [Suspect]
     Dosage: 400MG TO 600MG
     Route: 048
     Dates: start: 19971001, end: 20010801
  6. SEROQUEL [Suspect]
     Dosage: 400MG TO 600MG
     Route: 048
     Dates: start: 19971001, end: 20010801
  7. ZYPREXA/SYMBYAX (OLANZAPINE) [Concomitant]
     Dates: start: 20050701
  8. PROCARDIA [Concomitant]
     Route: 048
     Dates: start: 19970916
  9. TYLENOL (CAPLET) [Concomitant]
     Indication: PAIN
     Route: 048
     Dates: start: 19970914
  10. CATAPRES [Concomitant]
     Route: 048
     Dates: start: 19970922
  11. RISPERDAL [Concomitant]
     Route: 048
     Dates: start: 19970922
  12. PAXIL [Concomitant]
     Route: 048
     Dates: start: 19970926
  13. PRINIVIL [Concomitant]
     Route: 048
     Dates: start: 19971001

REACTIONS (7)
  - DIABETES MELLITUS [None]
  - DYSLIPIDAEMIA [None]
  - HYPERCHOLESTEROLAEMIA [None]
  - NAUSEA [None]
  - OBESITY [None]
  - PAIN [None]
  - TYPE 2 DIABETES MELLITUS [None]
